FAERS Safety Report 11898978 (Version 1)
Quarter: 2016Q1

REPORT INFORMATION
  Report Type: Spontaneous
  Country: US (occurrence: None)
  Receive Date: 20160107
  Receipt Date: 20160107
  Transmission Date: 20160526
  Serious: No
  Sender: FDA-Public Use
  Company Number: None

PATIENT
  Age: 57 Year
  Sex: Male
  Weight: 83.01 kg

DRUGS (6)
  1. SUCRALFATE 1 GM TEVA [Suspect]
     Active Substance: SUCRALFATE
     Indication: OESOPHAGITIS
     Route: 048
     Dates: start: 20150104, end: 20150104
  2. ONDANSETRON [Concomitant]
     Active Substance: ONDANSETRON
  3. SYMBICORT [Concomitant]
     Active Substance: BUDESONIDE\FORMOTEROL FUMARATE DIHYDRATE
  4. ALBUTEROL MDI [Concomitant]
     Active Substance: ALBUTEROL
  5. PANTOPRAZOLE [Concomitant]
     Active Substance: PANTOPRAZOLE SODIUM
  6. MONTELUKAST [Concomitant]
     Active Substance: MONTELUKAST SODIUM

REACTIONS (1)
  - Rash [None]

NARRATIVE: CASE EVENT DATE: 20160104
